FAERS Safety Report 7006988-7 (Version None)
Quarter: 2010Q3

REPORT INFORMATION
  Report Type: 
  Country: None (occurrence: None)
  Receive Date: 20100922
  Receipt Date: 20100908
  Transmission Date: 20110219
  Serious: Yes (Hospitalization)
  Sender: FDA-Public Use
  Company Number: IT-CUBIST-2010S1001373

PATIENT
  Age: 64 Year
  Sex: Male

DRUGS (5)
  1. CUBICIN [Suspect]
     Indication: SEPSIS
     Route: 042
     Dates: start: 20100825, end: 20100829
  2. PIPERACILLIN W/TAZOBACTAM [Suspect]
     Indication: SEPSIS
     Route: 042
     Dates: start: 20100826, end: 20100829
  3. DIFLUCAN [Suspect]
     Indication: SEPSIS
     Route: 042
     Dates: start: 20100827, end: 20100827
  4. DIFLUCAN [Suspect]
     Route: 042
     Dates: start: 20100828, end: 20100829
  5. RIVOTRIL [Concomitant]
     Indication: PRODUCT USED FOR UNKNOWN INDICATION

REACTIONS (1)
  - ERYTHEMA MULTIFORME [None]
